FAERS Safety Report 4308924-0 (Version None)
Quarter: 2004Q1

REPORT INFORMATION
  Report Type: 
  Country: None (occurrence: None)
  Receive Date: 20040227
  Receipt Date: 20040217
  Transmission Date: 20041129
  Serious: Yes (Hospitalization)
  Sender: FDA-Public Use
  Company Number: FR-JNJFOC-20040203901

PATIENT
  Age: 72 Year
  Sex: Female

DRUGS (11)
  1. TRAMADOL HCL [Suspect]
     Indication: DRUG USE FOR UNKNOWN INDICATION
     Dosage: 2 IN 1 DAY, ORAL
     Route: 048
     Dates: end: 20031201
  2. FUROSEMIDE [Suspect]
     Indication: ESSENTIAL HYPERTENSION
     Dosage: 1 IN 1 DAY
     Dates: end: 20031203
  3. NEURONTIN [Suspect]
     Indication: DRUG USE FOR UNKNOWN INDICATION
     Dosage: 2 IN 1 DAY, ORAL
     Route: 048
     Dates: end: 20031201
  4. IRBESARTAN (IRBESARTAN) [Suspect]
     Indication: ESSENTIAL HYPERTENSION
     Dosage: 1 IN 1 DAY, ORAL
     Route: 048
     Dates: end: 20031201
  5. EFFEXOR [Suspect]
     Indication: DEPRESSION
     Dosage: ORAL
     Route: 048
     Dates: end: 20031201
  6. DIFRAREL (DIFRAREL) [Concomitant]
  7. ACETAMINOPHEN [Concomitant]
  8. VASTAREL (TRIMETAZIDINE HYDROCHLORIDE) [Concomitant]
  9. AMLODIPINE BESYLATE [Concomitant]
  10. GLUCOR (ACABOSE) [Concomitant]
  11. LANSOPRAZOLE [Concomitant]

REACTIONS (5)
  - CEREBRAL ATROPHY [None]
  - DRUG INTERACTION [None]
  - FALL [None]
  - HEADACHE [None]
  - VERTIGO [None]
